FAERS Safety Report 21551549 (Version 1)
Quarter: 2022Q4

REPORT INFORMATION
  Report Type: Spontaneous
  Country: IT (occurrence: IT)
  Receive Date: 20221103
  Receipt Date: 20221103
  Transmission Date: 20230112
  Serious: No
  Sender: FDA-Public Use
  Company Number: IT-PADAGIS-2022PAD00845

PATIENT

DRUGS (4)
  1. SCOPOLAMINE [Suspect]
     Active Substance: SCOPOLAMINE
     Indication: Salivary hypersecretion
     Dosage: 0.75 MG EVERY 72 HOUR
     Route: 001
     Dates: start: 201804
  2. SCOPOLAMINE [Suspect]
     Active Substance: SCOPOLAMINE
     Dosage: 1.5 MG EVERY 72 HOUR
     Route: 001
     Dates: start: 201807
  3. BOTULINUM TOXIN TYPE A [Concomitant]
     Active Substance: BOTULINUM TOXIN TYPE A
     Indication: Respiratory tract infection
     Dosage: UNK
     Route: 065
  4. BOTULINUM TOXIN TYPE A [Concomitant]
     Active Substance: BOTULINUM TOXIN TYPE A
     Indication: Salivary hypersecretion

REACTIONS (3)
  - Drug ineffective for unapproved indication [Unknown]
  - Therapy partial responder [Unknown]
  - Product use issue [Unknown]
